FAERS Safety Report 8615686-5 (Version None)
Quarter: 2012Q3

REPORT INFORMATION
  Report Type: 
  Country: None (occurrence: None)
  Receive Date: 20120823
  Receipt Date: 20120813
  Transmission Date: 20120928
  Serious: Yes (Hospitalization)
  Sender: FDA-Public Use
  Company Number: US-ELI_LILLY_AND_COMPANY-US201207001583

PATIENT
  Age: 84 Year
  Sex: Male
  Weight: 65.76 kg

DRUGS (14)
  1. VITAMIN D [Concomitant]
     Dosage: UNK
  2. ASPIRIN [Concomitant]
     Dosage: UNK
  3. ACYCLOVIR [Concomitant]
     Dosage: UNK
  4. NIFEDIPINE [Concomitant]
     Dosage: UNK
  5. PROPRANOLOL [Concomitant]
     Dosage: UNK
  6. CELEBREX [Concomitant]
     Dosage: UNK
  7. METHOTREXATE [Concomitant]
     Dosage: UNK
  8. VIT E                              /00110501/ [Concomitant]
     Dosage: UNK
  9. CALCIUM [Concomitant]
     Dosage: UNK
  10. TYLENOL                                 /SCH/ [Concomitant]
     Dosage: UNK
  11. MAXZIDE [Concomitant]
     Dosage: UNK
  12. FORTEO [Suspect]
     Indication: OSTEOPOROSIS
     Dosage: 20 UG, QD
     Dates: start: 20110902
  13. LEVOTHYROXINE SODIUM [Concomitant]
     Dosage: UNK
  14. REQUIP [Concomitant]
     Dosage: UNK

REACTIONS (4)
  - BODY TEMPERATURE INCREASED [None]
  - SEPSIS [None]
  - PYREXIA [None]
  - DELIRIUM [None]
